FAERS Safety Report 8758795 (Version 1)
Quarter: 2012Q4

REPORT INFORMATION
  Report Type: 
  Country: GB (occurrence: GB)
  Receive Date: 20120829
  Receipt Date: 20120829
  Transmission Date: 20130627
  Serious: Yes (Disabling, Other)
  Sender: FDA-Public Use
  Company Number: GB-MYLANLABS-2012S1016920

PATIENT
  Sex: Female

DRUGS (3)
  1. NAPROXEN [Suspect]
     Indication: INFLAMMATION
     Dates: start: 201207, end: 20120714
  2. VOLTAROL [Suspect]
     Indication: INFLAMMATION
     Route: 061
     Dates: start: 20120714, end: 20120717
  3. OMEPRAZOLE [Concomitant]
     Indication: GASTRITIS

REACTIONS (12)
  - Diarrhoea [Recovered/Resolved]
  - Blister [Not Recovered/Not Resolved]
  - Insomnia [Unknown]
  - Dry mouth [Recovered/Resolved]
  - Rash [Not Recovered/Not Resolved]
  - Feeling hot [Not Recovered/Not Resolved]
  - Movement disorder [Unknown]
  - Pain [Not Recovered/Not Resolved]
  - Salmonellosis [Recovered/Resolved]
  - Abdominal pain upper [Recovered/Resolved]
  - Swelling [Not Recovered/Not Resolved]
  - Gait disturbance [Unknown]
